FAERS Safety Report 19596657 (Version 2)
Quarter: 2021Q3

REPORT INFORMATION
  Report Type: Report from Study
  Country: CA (occurrence: CA)
  Receive Date: 20210723
  Receipt Date: 20210827
  Transmission Date: 20211014
  Serious: Yes (Other)
  Sender: FDA-Public Use
  Company Number: CA-JNJFOC-20210737520

PATIENT
  Age: 10 Year
  Sex: Male
  Weight: 34 kg

DRUGS (1)
  1. REMICADE [Suspect]
     Active Substance: INFLIXIMAB
     Indication: CROHN^S DISEASE
     Route: 042

REACTIONS (7)
  - Haemorrhage [Unknown]
  - Psoriasis [Recovering/Resolving]
  - Superinfection [Recovering/Resolving]
  - Product use issue [Unknown]
  - Upper limb fracture [Recovering/Resolving]
  - Off label use [Unknown]
  - Eye infection [Not Recovered/Not Resolved]

NARRATIVE: CASE EVENT DATE: 2021
